FAERS Safety Report 12159460 (Version 1)
Quarter: 2016Q1

REPORT INFORMATION
  Report Type: Spontaneous
  Country: US (occurrence: None)
  Receive Date: 20160307
  Receipt Date: 20160307
  Transmission Date: 20160526
  Serious: No
  Sender: FDA-Public Use
  Company Number: None

PATIENT
  Age: 62 Year
  Sex: Male

DRUGS (1)
  1. QUAD MIX COMPOUNDING SOLUTION / INJECTION [Suspect]
     Active Substance: ALPROSTADIL\ATROPINE\PAPAVERINE\PHENTOLAMINE

REACTIONS (4)
  - Product compounding quality issue [None]
  - Product expiration date issue [None]
  - Drug administration error [None]
  - Product sterility lacking [None]

NARRATIVE: CASE EVENT DATE: 20151001
